FAERS Safety Report 5112561-8 (Version None)
Quarter: 2006Q3

REPORT INFORMATION
  Report Type: 
  Country: None (occurrence: None)
  Receive Date: 20060922
  Receipt Date: 20060727
  Transmission Date: 20061208
  Serious: Yes (Death)
  Sender: FDA-Public Use
  Company Number: VE-ABBOTT-06P-178-0339214-00

PATIENT
  Age: 30 Year
  Sex: Male
  Weight: 140 kg

DRUGS (4)
  1. SEVORANE [Suspect]
     Indication: ANAESTHESIA
     Dosage: TOTAL DAILY DOSE: CAM 2
     Route: 055
  2. PENTHOTAL [Concomitant]
     Indication: ANAESTHESIA
     Route: 042
  3. SUXAMETHONIUM CHLORIDE [Concomitant]
     Indication: HYPOTONIA
     Route: 042
  4. FENTANYL CITRATE [Concomitant]
     Indication: ANALGESIC EFFECT
     Route: 042

REACTIONS (1)
  - HYPERTHERMIA MALIGNANT [None]
